FAERS Safety Report 17170612 (Version 1)
Quarter: 2019Q4

REPORT INFORMATION
  Report Type: Report from Study
  Country: US (occurrence: US)
  Receive Date: 20191218
  Receipt Date: 20191218
  Transmission Date: 20200122
  Serious: Yes (Hospitalization)
  Sender: FDA-Public Use
  Company Number: US-BAUSCH-BL-2019-064829

PATIENT
  Age: 49 Year
  Sex: Female

DRUGS (3)
  1. XIFAXAN [Suspect]
     Active Substance: RIFAXIMIN
     Dosage: CONTINUED THROUGHOUT HOSPITAL STAY
     Route: 048
     Dates: start: 2019
  2. XIFAXAN [Suspect]
     Active Substance: RIFAXIMIN
     Indication: HEPATIC ENCEPHALOPATHY
     Dosage: SINCE EARLIER THIS YEAR
     Route: 048
     Dates: start: 2019, end: 2019
  3. LACTULOSE. [Concomitant]
     Active Substance: LACTULOSE
     Indication: PRODUCT USED FOR UNKNOWN INDICATION

REACTIONS (5)
  - Blood bilirubin abnormal [Unknown]
  - Therapy cessation [Unknown]
  - Abnormal clotting factor [Unknown]
  - Abdominal infection [Unknown]
  - Ammonia increased [Unknown]

NARRATIVE: CASE EVENT DATE: 2019
